FAERS Safety Report 17392924 (Version 1)
Quarter: 2020Q1

REPORT INFORMATION
  Report Type: Spontaneous
  Country: RO (occurrence: RO)
  Receive Date: 20200208
  Receipt Date: 20200208
  Transmission Date: 20200409
  Serious: Yes (Other)
  Sender: FDA-Public Use
  Company Number: RO-ROCHE-2539665

PATIENT
  Age: 50 Year
  Sex: Female

DRUGS (2)
  1. TRASTUZUMAB. [Suspect]
     Active Substance: TRASTUZUMAB
     Indication: INFLAMMATORY CARCINOMA OF BREAST STAGE III
     Dosage: UNK
     Route: 065
  2. CYCLOPHOSPHAMIDE. [Concomitant]
     Active Substance: CYCLOPHOSPHAMIDE
     Indication: BREAST CANCER

REACTIONS (1)
  - Metastases to central nervous system [Recovered/Resolved with Sequelae]
